FAERS Safety Report 8416112-1 (Version None)
Quarter: 2012Q2

REPORT INFORMATION
  Report Type: 
  Country: None (occurrence: None)
  Receive Date: 20120530
  Receipt Date: 20120517
  Transmission Date: 20120825
  Serious: Yes (Other)
  Sender: FDA-Public Use
  Company Number: 1291901

PATIENT
  Age: 29 Year
  Sex: Female
  Weight: 46 kg

DRUGS (1)
  1. CYTARABINE [Suspect]

REACTIONS (4)
  - NON-CARDIOGENIC PULMONARY OEDEMA [None]
  - ACUTE RESPIRATORY DISTRESS SYNDROME [None]
  - BLOOD BILIRUBIN INCREASED [None]
  - HYPOXIA [None]
